FAERS Safety Report 10620219 (Version 1)
Quarter: 2014Q4

REPORT INFORMATION
  Report Type: Spontaneous
  Country: KH (occurrence: None)
  Receive Date: 20141201
  Receipt Date: 20141201
  Transmission Date: 20150529
  Serious: Yes (Disabling)
  Sender: FDA-Public Use
  Company Number: None

PATIENT
  Age: 55 Year
  Sex: Female
  Weight: 65 kg

DRUGS (2)
  1. LEVOFLOXACIN. [Suspect]
     Active Substance: LEVOFLOXACIN
     Indication: BRONCHITIS
     Route: 048
     Dates: start: 20140611, end: 20140612
  2. LEVOFLOXACIN. [Suspect]
     Active Substance: LEVOFLOXACIN
     Indication: PNEUMONIA
     Route: 048
     Dates: start: 20140611, end: 20140612

REACTIONS (8)
  - Insomnia [None]
  - Neuropathy peripheral [None]
  - Burning sensation [None]
  - Myalgia [None]
  - Joint stiffness [None]
  - Arthralgia [None]
  - Blister [None]
  - Rash pruritic [None]

NARRATIVE: CASE EVENT DATE: 20140611
